FAERS Safety Report 7789602-2 (Version None)
Quarter: 2011Q3

REPORT INFORMATION
  Report Type: 
  Country: None (occurrence: None)
  Receive Date: 20110930
  Receipt Date: 20110927
  Transmission Date: 20111222
  Serious: Yes (Other)
  Sender: FDA-Public Use
  Company Number: US-PFIZER INC-2010081103

PATIENT
  Sex: Male

DRUGS (7)
  1. CHANTIX [Suspect]
     Indication: SMOKING CESSATION THERAPY
     Dosage: STARTER PACK
     Dates: start: 20080601, end: 20090201
  2. PAROXETINE [Concomitant]
     Indication: DEPRESSION
     Dosage: UNK
     Dates: start: 20081101, end: 20110201
  3. DILTIAZEM [Concomitant]
     Indication: HYPERTENSION
     Dosage: UNK
     Dates: start: 20071201, end: 20100701
  4. PLAVIX [Concomitant]
     Indication: CARDIAC DISORDER
     Dosage: UNK
     Dates: start: 20071201, end: 20100701
  5. CLONAZEPAM [Concomitant]
     Indication: AKATHISIA
     Dosage: UNK
     Dates: start: 20071201, end: 20100801
  6. HYDROCODONE [Concomitant]
     Indication: ANALGESIC THERAPY
     Dosage: UNK
     Dates: start: 20080101, end: 20100701
  7. AZITHROMYCIN [Concomitant]
     Indication: ANTIBIOTIC THERAPY
     Dosage: UNK
     Dates: start: 20080101, end: 20100601

REACTIONS (6)
  - EMOTIONAL DISTRESS [None]
  - LOSS OF CONSCIOUSNESS [None]
  - ABNORMAL BEHAVIOUR [None]
  - INJURY [None]
  - AGGRESSION [None]
  - MENTAL DISORDER [None]
